FAERS Safety Report 7346472-4 (Version None)
Quarter: 2011Q1

REPORT INFORMATION
  Report Type: 
  Country: None (occurrence: None)
  Receive Date: 20110311
  Receipt Date: 20110303
  Transmission Date: 20110831
  Serious: Yes (Hospitalization)
  Sender: FDA-Public Use
  Company Number: JP-JNJFOC-20110201692

PATIENT
  Age: 8 Decade
  Sex: Female

DRUGS (1)
  1. DOXIL [Suspect]
     Indication: OVARIAN CANCER RECURRENT
     Dosage: 19 CYCLES, TOTAL DOSE 1330 MG
     Route: 042

REACTIONS (2)
  - MYOCARDIAL INFARCTION [None]
  - ARRHYTHMIA [None]
